FAERS Safety Report 16110386 (Version 2)
Quarter: 2019Q2

REPORT INFORMATION
  Report Type: Spontaneous
  Country: US (occurrence: US)
  Receive Date: 20190325
  Receipt Date: 20190503
  Transmission Date: 20190711
  Serious: No
  Sender: FDA-Public Use
  Company Number: US-ASTRAZENECA-2019SE33330

PATIENT
  Age: 24378 Day
  Sex: Female
  Weight: 90.3 kg

DRUGS (6)
  1. BENTYL [Concomitant]
     Active Substance: DICYCLOMINE HYDROCHLORIDE
     Indication: ILL-DEFINED DISORDER
     Dosage: UNKNOWN
     Route: 048
  2. XIFAXAN [Concomitant]
     Active Substance: RIFAXIMIN
     Indication: ESCHERICHIA INFECTION
     Route: 048
  3. FASENRA [Suspect]
     Active Substance: BENRALIZUMAB
     Indication: ASTHMA
     Dosage: 30 MG, ONE TIME EVERY FOUR WEEKS FOR THE FIRST THREE DOSES AND THEN EVERY EIGHT WEEKS
     Route: 058
     Dates: start: 201808
  4. CARDIZEM XL [Concomitant]
     Indication: ATRIAL FIBRILLATION
     Dosage: UNKNOWN
     Route: 048
  5. PRADAXA [Concomitant]
     Active Substance: DABIGATRAN ETEXILATE MESYLATE
     Indication: CEREBROVASCULAR ACCIDENT
     Route: 048
  6. FASENRA [Suspect]
     Active Substance: BENRALIZUMAB
     Indication: ASTHMA
     Dosage: 30 MG, ONE TIME EVERY FOUR WEEKS FOR THE FIRST THREE DOSES AND THEN EVERY EIGHT WEEKS
     Route: 058
     Dates: start: 201808

REACTIONS (6)
  - Back pain [Not Recovered/Not Resolved]
  - Gastroenteritis Escherichia coli [Not Recovered/Not Resolved]
  - Nausea [Unknown]
  - Dry eye [Unknown]
  - Abdominal pain lower [Not Recovered/Not Resolved]
  - Pruritus [Unknown]

NARRATIVE: CASE EVENT DATE: 20190221
